FAERS Safety Report 14404644 (Version 12)
Quarter: 2021Q3

REPORT INFORMATION
  Report Type: Report from Study
  Country: IT (occurrence: IT)
  Receive Date: 20180117
  Receipt Date: 20210925
  Transmission Date: 20211014
  Serious: Yes (Death, Hospitalization, Other)
  Sender: FDA-Public Use
  Company Number: PHHY2018IT004303

PATIENT
  Age: 51 Year
  Sex: Female

DRUGS (20)
  1. TAFINLAR [Suspect]
     Active Substance: DABRAFENIB MESYLATE
     Dosage: 200 OT, UNK
     Route: 048
     Dates: start: 20180213, end: 20180219
  2. TAFINLAR [Suspect]
     Active Substance: DABRAFENIB MESYLATE
     Dosage: 200 OT, UNK
     Route: 048
     Dates: start: 20180308, end: 20180527
  3. MORFINA [Concomitant]
     Active Substance: MORPHINE HYDROCHLORIDE
     Indication: CONDITION AGGRAVATED
     Dosage: 6 OT, UNK
     Route: 042
     Dates: start: 20180601, end: 20180601
  4. VALIUM [Concomitant]
     Active Substance: DIAZEPAM
     Indication: CONDITION AGGRAVATED
     Dosage: 1 OT, UNK
     Route: 042
     Dates: start: 20180601, end: 20180611
  5. AUGMENTIN [Concomitant]
     Active Substance: AMOXICILLIN\CLAVULANATE POTASSIUM
     Indication: PROPHYLAXIS
     Dosage: 1 OT, UNK
     Route: 048
     Dates: start: 20180208, end: 20180213
  6. TRAMETINIB [Suspect]
     Active Substance: TRAMETINIB
     Dosage: 2 OT, UNK
     Route: 048
     Dates: start: 20180308, end: 20180527
  7. DEXAMETHASONE. [Concomitant]
     Active Substance: DEXAMETHASONE
     Indication: CONDITION AGGRAVATED
     Dosage: 2 MG, UNK
     Route: 048
     Dates: start: 20171109
  8. CATAPRES?TTS [Concomitant]
     Active Substance: CLONIDINE
     Indication: HYPERTENSION
     Dosage: 2.5 OT, UNK
     Route: 062
     Dates: start: 20171001, end: 20171230
  9. TAFINLAR [Suspect]
     Active Substance: DABRAFENIB MESYLATE
     Indication: MALIGNANT MELANOMA
     Dosage: 200 OT, UNK
     Route: 048
     Dates: start: 20180117, end: 20180205
  10. TRAMETINIB [Suspect]
     Active Substance: TRAMETINIB
     Indication: METASTATIC MALIGNANT MELANOMA
     Dosage: 2 MG, UNK
     Route: 048
     Dates: start: 20171212, end: 20180104
  11. TRAMETINIB [Suspect]
     Active Substance: TRAMETINIB
     Dosage: 2 OT, UNK
     Route: 048
     Dates: start: 20180213, end: 20180219
  12. OMEPRAZOLE. [Concomitant]
     Active Substance: OMEPRAZOLE
     Indication: PRODUCT USED FOR UNKNOWN INDICATION
     Dosage: 20 MG, UNK
     Route: 065
     Dates: start: 20171109
  13. PLASIL [Concomitant]
     Active Substance: METOCLOPRAMIDE HYDROCHLORIDE
     Indication: CONDITION AGGRAVATED
     Dosage: 3 OT, UNK
     Route: 042
     Dates: start: 20180601, end: 20180611
  14. RANITIDINE HYDROCHLORIDE. [Concomitant]
     Active Substance: RANITIDINE HYDROCHLORIDE
     Indication: CONDITION AGGRAVATED
     Dosage: 3 OT, UNK
     Route: 042
     Dates: start: 20180601, end: 20180611
  15. DEXAMETHASONE. [Concomitant]
     Active Substance: DEXAMETHASONE
     Dosage: 12 OT, UNK
     Route: 048
     Dates: start: 20180601, end: 20180611
  16. SOLDESAM [Concomitant]
     Active Substance: DEXAMETHASONE
     Indication: MALIGNANT MELANOMA
  17. DEXAMETHASONE SODIUM PHOSPHATE. [Concomitant]
     Active Substance: DEXAMETHASONE SODIUM PHOSPHATE
     Indication: CONDITION AGGRAVATED
     Dosage: 12 OT
     Route: 048
     Dates: start: 20180601, end: 20180611
  18. TAFINLAR [Suspect]
     Active Substance: DABRAFENIB MESYLATE
     Indication: METASTATIC MALIGNANT MELANOMA
     Dosage: 300 MG, QD
     Route: 048
     Dates: start: 20171212, end: 20180104
  19. SOLDESAM [Concomitant]
     Active Substance: DEXAMETHASONE
     Indication: ADRENOCORTICAL STEROID THERAPY
     Dosage: 32 OT, UNK
     Route: 048
     Dates: start: 20171001
  20. TRAMETINIB [Suspect]
     Active Substance: TRAMETINIB
     Indication: MALIGNANT MELANOMA
     Dosage: 2 OT, UNK
     Route: 048
     Dates: start: 20180117, end: 20180205

REACTIONS (19)
  - Arthralgia [Recovering/Resolving]
  - General physical health deterioration [Fatal]
  - Alanine aminotransferase increased [Recovered/Resolved]
  - Pyrexia [Recovered/Resolved]
  - Pyrexia [Recovered/Resolved]
  - Pyrexia [Recovered/Resolved]
  - Intestinal obstruction [Fatal]
  - Hepatotoxicity [Recovered/Resolved]
  - Vomiting [Fatal]
  - Aspartate aminotransferase increased [Recovered/Resolved]
  - Chills [Recovered/Resolved]
  - Pelvic pain [Fatal]
  - Chills [Recovered/Resolved]
  - Hepatotoxicity [Recovered/Resolved]
  - Abdominal pain [Fatal]
  - Nausea [Fatal]
  - Pyrexia [Recovered/Resolved]
  - Alanine aminotransferase increased [Recovering/Resolving]
  - Pyrexia [Recovered/Resolved]

NARRATIVE: CASE EVENT DATE: 20180101
